APPROVED DRUG PRODUCT: LORATADINE
Active Ingredient: LORATADINE
Strength: 1MG/ML
Dosage Form/Route: SYRUP;ORAL
Application: A075565 | Product #001
Applicant: PHARMACEUTICAL ASSOCIATES INC
Approved: Oct 5, 2004 | RLD: No | RS: No | Type: DISCN